FAERS Safety Report 12177382 (Version 1)
Quarter: 2016Q1

REPORT INFORMATION
  Report Type: Other
  Country: GB (occurrence: GB)
  Receive Date: 20160314
  Receipt Date: 20160314
  Transmission Date: 20160526
  Serious: Yes (Disabling, Other)
  Sender: FDA-Public Use
  Company Number: GB-MYLANLABS-2016M1010041

PATIENT

DRUGS (5)
  1. VENTOLIN [Concomitant]
     Active Substance: ALBUTEROL SULFATE
     Indication: ASTHMA
     Dosage: 2 DF, (EVOHALER, ONGOING)
     Route: 055
     Dates: start: 20150609
  2. LANSOPRAZOLE. [Concomitant]
     Active Substance: LANSOPRAZOLE
     Indication: GASTROINTESTINAL DISORDER
     Dosage: 15 MG, QD (IN THE MORNING, ONGOING)
     Route: 048
     Dates: start: 20150609
  3. PRAVASTATIN [Suspect]
     Active Substance: PRAVASTATIN\PRAVASTATIN SODIUM
     Dosage: 20 MG, QD (AT NIGHT)
     Route: 048
     Dates: start: 20151127
  4. PREDNISOLONE. [Suspect]
     Active Substance: PREDNISOLONE
     Dosage: 5 MG, (MULTIPLE DOSE VIAL)
     Route: 048
     Dates: start: 20160113
  5. PREDNISOLONE. [Concomitant]
     Active Substance: PREDNISOLONE
     Indication: COLITIS ULCERATIVE
     Dosage: 20 MG, (MULTIPLE DOSE VIAL, ONGOING)
     Route: 054
     Dates: start: 20151211

REACTIONS (4)
  - Asthenia [Recovered/Resolved]
  - Malaise [Recovered/Resolved]
  - Incoherent [Recovered/Resolved]
  - Dizziness [Recovered/Resolved]
